FAERS Safety Report 18011576 (Version 1)
Quarter: 2020Q3

REPORT INFORMATION
  Report Type: Spontaneous
  Country: AT (occurrence: AT)
  Receive Date: 20200713
  Receipt Date: 20200713
  Transmission Date: 20201103
  Serious: Yes (Death)
  Sender: FDA-Public Use
  Company Number: AT-009507513-2006AUT003476

PATIENT
  Age: 6 Year
  Sex: Female

DRUGS (2)
  1. TEMODAL [Suspect]
     Active Substance: TEMOZOLOMIDE
     Indication: BRAIN NEOPLASM
     Dosage: 20 MG/3 TIMES A DAY, 5 DAYS LONG
     Route: 048
     Dates: start: 202003
  2. TEMODAL [Suspect]
     Active Substance: TEMOZOLOMIDE
     Dosage: 20 MG/SIX TIMES PER DAY
     Route: 048
     Dates: start: 202006

REACTIONS (2)
  - Dysphagia [Unknown]
  - Adverse event [Fatal]

NARRATIVE: CASE EVENT DATE: 202006
